FAERS Safety Report 8300181-3 (Version None)
Quarter: 2012Q1

REPORT INFORMATION
  Report Type: 
  Country: None (occurrence: None)
  Receive Date: 20120323
  Receipt Date: 20100419
  Transmission Date: 20120608
  Serious: Yes (Hospitalization, Other)
  Sender: FDA-Public Use
  Company Number: PHHY2010US24813

PATIENT
  Age: 88 Year
  Sex: Male

DRUGS (10)
  1. REGLAN /USA/ (METOCLOPRAMIDE HYDROCHLORIDE) [Concomitant]
  2. ADVAIR HFA [Concomitant]
  3. FLOMAX [Concomitant]
  4. PROTONIX [Concomitant]
  5. DETROL [Concomitant]
  6. TOBI [Suspect]
     Dates: start: 20090901
  7. FLONASE [Concomitant]
  8. DILTIAZEM [Concomitant]
  9. ALLEGRA [Concomitant]
  10. COUMADIN [Concomitant]

REACTIONS (2)
  - DRUG INEFFECTIVE [None]
  - WRONG TECHNIQUE IN DRUG USAGE PROCESS [None]
